FAERS Safety Report 8465074-X (Version None)
Quarter: 2012Q2

REPORT INFORMATION
  Report Type: 
  Country: None (occurrence: None)
  Receive Date: 20120626
  Receipt Date: 20120613
  Transmission Date: 20120825
  Serious: Yes (Hospitalization)
  Sender: FDA-Public Use
  Company Number: NL-MEDIMMUNE-MEDI-0013697

PATIENT
  Age: 12 Month
  Sex: Male
  Weight: 7.6 kg

DRUGS (11)
  1. SYNAGIS [Suspect]
     Route: 030
     Dates: start: 20111004
  2. DOMPERIDONE MALEATE [Concomitant]
     Indication: GASTROOESOPHAGEAL REFLUX DISEASE
  3. AMOXICILLIN [Concomitant]
     Indication: PROPHYLAXIS
  4. ALFACALCIDOL [Concomitant]
     Dosage: 1 DROP DAILY
  5. BECLOMETHASONE DIPROPIONATE [Concomitant]
     Dosage: 1 PUFF TWO TIMES A DAY
  6. ALBUTEROL [Concomitant]
  7. ESOMEPRAZOLE SODIUM [Concomitant]
     Indication: GASTROOESOPHAGEAL REFLUX DISEASE
  8. URSOFLOXCAPS [Concomitant]
  9. SYNAGIS [Suspect]
     Indication: BRONCHOPULMONARY DYSPLASIA
     Route: 030
     Dates: start: 20110906, end: 20110906
  10. VERNEVELEN IPRAXA [Concomitant]
  11. POTASSIUM NITRATE [Concomitant]

REACTIONS (3)
  - RESPIRATORY TRACT INFECTION [None]
  - DYSPNOEA [None]
  - BRONCHIAL OBSTRUCTION [None]
